FAERS Safety Report 17454616 (Version 1)
Quarter: 2020Q1

REPORT INFORMATION
  Report Type: Spontaneous
  Country: AT (occurrence: AT)
  Receive Date: 20200225
  Receipt Date: 20200225
  Transmission Date: 20200409
  Serious: Yes (Hospitalization, Other)
  Sender: FDA-Public Use
  Company Number: AT-CHEPLA-C20200754

PATIENT
  Sex: Female

DRUGS (7)
  1. RITUXIMAB. [Suspect]
     Active Substance: RITUXIMAB
     Indication: ANTISYNTHETASE SYNDROME
     Dosage: ON DAY 8 AND 15 POST HLH DIAGNOSIS
  2. CORTICOSTEROIDS [Suspect]
     Active Substance: CORTICOSTEROID NOS
     Indication: HAEMOPHAGOCYTIC LYMPHOHISTIOCYTOSIS
     Dosage: } 1 MG/KG
     Route: 065
  3. GANCICLOVIR. [Suspect]
     Active Substance: GANCICLOVIR
     Indication: CYTOMEGALOVIRUS INFECTION
  4. IVIG (INTRAVENOUS IMMUNOGLOBULIN) [Suspect]
     Active Substance: HUMAN IMMUNOGLOBULIN G
     Indication: HAEMOPHAGOCYTIC LYMPHOHISTIOCYTOSIS
     Dosage: 0.5 - 1G/KG FOR DAYS ?(DAY 3-5 POST HLH DIAGNOSIS)
     Route: 042
  5. CYCLOPHOSPHAMIDE. [Suspect]
     Active Substance: CYCLOPHOSPHAMIDE
     Indication: ANTISYNTHETASE SYNDROME
     Dosage: ON DAY 14 POST HLH DIAGNOSIS
  6. ANAKINRA [Suspect]
     Active Substance: ANAKINRA
     Indication: HAEMOPHAGOCYTIC LYMPHOHISTIOCYTOSIS
     Dosage: FROM DAY 3 POST HLH DIAGNOSIS,?ABSOLUTE DOSE OF 100-200MG 3X DAILY
     Route: 058
  7. HIGH-DOSE PULSE CORTICOSTEROIDS (PREDNISOLONE) [Suspect]
     Active Substance: PREDNISOLONE
     Indication: HAEMOPHAGOCYTIC LYMPHOHISTIOCYTOSIS
     Dosage: 250-500 MG?STARTING ON DAY 8 POST HLH DIAGNOSIS
     Route: 065

REACTIONS (4)
  - Vascular device infection [Unknown]
  - Restrictive pulmonary disease [Unknown]
  - Clostridium difficile colitis [Unknown]
  - Disease progression [Recovered/Resolved]
